FAERS Safety Report 10171208 (Version 1)
Quarter: 2014Q2

REPORT INFORMATION
  Report Type: Spontaneous
  Country: US (occurrence: None)
  Receive Date: 20140513
  Receipt Date: 20140513
  Transmission Date: 20141212
  Serious: No
  Sender: FDA-Public Use
  Company Number: None

PATIENT
  Sex: 0
  Weight: 48.08 kg

DRUGS (1)
  1. MIRENA IUD [Suspect]
     Dates: start: 200904

REACTIONS (4)
  - Haemorrhagic anaemia [None]
  - Device dislocation [None]
  - Complication of device removal [None]
  - Embedded device [None]
